FAERS Safety Report 16157033 (Version 1)
Quarter: 2019Q2

REPORT INFORMATION
  Report Type: Report from Study
  Country: None (occurrence: US)
  Receive Date: 20190404
  Receipt Date: 20190404
  Transmission Date: 20190711
  Serious: Yes (Other)
  Sender: FDA-Public Use
  Company Number: US-ABBVIE-19S-163-2725143-00

PATIENT
  Age: 26 Year
  Sex: Female

DRUGS (1)
  1. LUPRON DEPOT [Suspect]
     Active Substance: LEUPROLIDE ACETATE
     Indication: PRODUCT USED FOR UNKNOWN INDICATION
     Route: 065

REACTIONS (6)
  - Polyp [Unknown]
  - Uterine dilation and curettage [Unknown]
  - Laparoscopic surgery [Unknown]
  - Dysuria [Unknown]
  - Endometriosis [Unknown]
  - Endometriosis ablation [Unknown]

NARRATIVE: CASE EVENT DATE: 20190110
